FAERS Safety Report 11660119 (Version 1)
Quarter: 2015Q4

REPORT INFORMATION
  Report Type: Spontaneous
  Country: US (occurrence: None)
  Receive Date: 20151023
  Receipt Date: 20151023
  Transmission Date: 20160304
  Serious: Yes (Hospitalization, Disabling, Other)
  Sender: FDA-Public Use
  Company Number: None

PATIENT
  Age: 61 Year
  Sex: Male
  Weight: 73.48 kg

DRUGS (17)
  1. HYDROXYZINE [Concomitant]
     Active Substance: HYDROXYZINE\HYDROXYZINE HYDROCHLORIDE
  2. ROHTO [Concomitant]
  3. PANTOPRAZOLE [Concomitant]
     Active Substance: PANTOPRAZOLE SODIUM
  4. PATADAY [Concomitant]
     Active Substance: OLOPATADINE HYDROCHLORIDE
  5. CALCIUM 500 + D [Concomitant]
     Active Substance: CALCIUM\VITAMIN D
  6. SYNTROID [Concomitant]
  7. TRAVATAN [Concomitant]
     Active Substance: TRAVOPROST
  8. ALBUTEROL FOR NEBULIZER [Concomitant]
  9. GABAPENTIN. [Concomitant]
     Active Substance: GABAPENTIN
  10. LISINOPRIL. [Concomitant]
     Active Substance: LISINOPRIL
  11. TYLENOL EXTRA STRENGTH [Concomitant]
     Active Substance: ACETAMINOPHEN
  12. POYETH GLYCOL [Concomitant]
  13. DURAGESIC [Concomitant]
     Active Substance: FENTANYL
  14. DOMPERIDONE [Suspect]
     Active Substance: DOMPERIDONE
     Indication: IMPAIRED GASTRIC EMPTYING
     Dosage: 1 CAPSULES FOUR TIMES A DAY BEFORE MEALS 4 TIMES A DAY BY MOUTH
     Route: 048
     Dates: start: 201409, end: 201412
  15. ESTRADIOL. [Concomitant]
     Active Substance: ESTRADIOL
  16. PROAIR HFA [Concomitant]
     Active Substance: ALBUTEROL SULFATE
  17. FENTANYL TRANSDERMAL SYSTEM [Concomitant]
     Active Substance: FENTANYL

REACTIONS (8)
  - Hypertension [None]
  - Heart rate increased [None]
  - Dizziness [None]
  - Fear [None]
  - Asthma [None]
  - Anorectal discomfort [None]
  - Impaired driving ability [None]
  - Product substitution issue [None]

NARRATIVE: CASE EVENT DATE: 201409
